FAERS Safety Report 9242793 (Version 1)
Quarter: 2013Q2

REPORT INFORMATION
  Report Type: Spontaneous
  Country: US (occurrence: US)
  Receive Date: 20130419
  Receipt Date: 20130419
  Transmission Date: 20140414
  Serious: Yes (Hospitalization, Other)
  Sender: FDA-Public Use
  Company Number: US-BRISTOL-MYERS SQUIBB COMPANY-18722603

PATIENT
  Age: 61 Year
  Sex: Male
  Weight: 138.32 kg

DRUGS (9)
  1. BYETTA [Suspect]
     Indication: TYPE 2 DIABETES MELLITUS
     Dosage: 10UG
     Route: 058
     Dates: start: 2011
  2. LANTUS [Concomitant]
     Indication: TYPE 2 DIABETES MELLITUS
  3. COREG [Concomitant]
     Indication: CARDIAC DISORDER
  4. ASPIRIN [Concomitant]
     Indication: CARDIAC DISORDER
  5. LISINOPRIL [Concomitant]
     Indication: HYPERTENSION
     Dosage: 10MG/DAY
     Route: 048
  6. FUROSEMIDE [Concomitant]
     Indication: HYPERTENSION
     Dosage: 20MG/DAY
     Route: 048
  7. SPIRONOLACTONE [Concomitant]
     Indication: HYPERTENSION
  8. EXENATIDE 10MCG PEN, DISPOSABLE DEVICE [Concomitant]
  9. EXENATIDE 5MCG PEN, DISPOSABLE DEVICE [Concomitant]

REACTIONS (11)
  - Bladder cancer [Not Recovered/Not Resolved]
  - Blood pressure decreased [Recovering/Resolving]
  - Renal impairment [Recovering/Resolving]
  - Weight decreased [Unknown]
  - Blood glucose increased [Not Recovered/Not Resolved]
  - Kidney infection [Unknown]
  - Dry mouth [Unknown]
  - Decreased appetite [Unknown]
  - Blood glucose decreased [Unknown]
  - Vomiting [Unknown]
  - Diarrhoea [Unknown]
